FAERS Safety Report 10502852 (Version 1)
Quarter: 2014Q4

REPORT INFORMATION
  Report Type: Spontaneous
  Country: GB (occurrence: None)
  Receive Date: 20141003
  Receipt Date: 20141003
  Transmission Date: 20150528
  Serious: Yes (Other)
  Sender: FDA-Public Use
  Company Number: GH-H14001-14-00859

PATIENT
  Age: 78 Year
  Sex: Male

DRUGS (6)
  1. BISACODYL (BISACODYL) (UNKNOWN) (BISACODYL) [Concomitant]
  2. PIRITONN (CHLORPHENAMINE MALEATE) (UNKNOWN) (CHLORPHENAMINE MALEATE) [Concomitant]
  3. PHENYTOIN SODIUM. [Suspect]
     Active Substance: PHENYTOIN SODIUM
     Indication: PRODUCT USED FOR UNKNOWN INDICATION
     Dates: start: 20140813, end: 201409
  4. EPILEM (VALPROATE SODIUM) (UNKNOWN) (VALPORATE SODIUM) [Concomitant]
  5. IBUPROFEN (IBUPROFEN) (UNKNOWN) (IBUPROFEN) [Concomitant]
  6. SIMVASTATIN (SIMVASTATIN) (UNKNOWN) (SIMVASTATIN) [Concomitant]

REACTIONS (1)
  - Erythrodermic psoriasis [None]

NARRATIVE: CASE EVENT DATE: 20140916
